FAERS Safety Report 5759527-2 (Version None)
Quarter: 2008Q2

REPORT INFORMATION
  Report Type: 
  Country: None (occurrence: None)
  Receive Date: 20080605
  Receipt Date: 20080527
  Transmission Date: 20081010
  Serious: Yes (Other)
  Sender: FDA-Public Use
  Company Number: US-NOVOPROD-275244

PATIENT
  Sex: Male
  Weight: 72.9 kg

DRUGS (4)
  1. NORDITROPIN [Suspect]
     Indication: GROWTH HORMONE DEFICIENCY
     Dosage: UNKNOWN
     Route: 058
     Dates: start: 20051010
  2. TESTOSTERONE [Concomitant]
     Dosage: 50 MG, Q MONTH
  3. NASACORT [Concomitant]
     Indication: HYPERSENSITIVITY
     Dosage: 1 PUFF, PRN
     Route: 045
  4. SINGULAIR [Concomitant]
     Dosage: UNKNOWN
     Route: 048

REACTIONS (1)
  - BONE FORMATION INCREASED [None]
